FAERS Safety Report 23301406 (Version 1)
Quarter: 2023Q4

REPORT INFORMATION
  Report Type: Spontaneous
  Country: US (occurrence: US)
  Receive Date: 20231215
  Receipt Date: 20231215
  Transmission Date: 20240109
  Serious: Yes (Hospitalization, Other)
  Sender: FDA-Public Use
  Company Number: US-EPICPHARMA-US-2023EPCLIT01824

PATIENT
  Age: 56 Year
  Sex: Male

DRUGS (11)
  1. AMLODIPINE BESYLATE [Suspect]
     Active Substance: AMLODIPINE BESYLATE
     Indication: Hypertension
     Route: 065
  2. PEMBROLIZUMAB [Suspect]
     Active Substance: PEMBROLIZUMAB
     Indication: Lung adenocarcinoma
     Dosage: COMPLETED 4 CYCLES
     Route: 065
     Dates: start: 202006, end: 202008
  3. PEMBROLIZUMAB [Suspect]
     Active Substance: PEMBROLIZUMAB
     Dosage: 5TH MAINTENANCE DOSE
     Route: 065
     Dates: start: 202009
  4. PEMETREXED [Suspect]
     Active Substance: PEMETREXED
     Indication: Lung adenocarcinoma
     Dosage: COMPLETED 4 CYCLES
     Route: 065
     Dates: start: 202006, end: 202008
  5. PEMETREXED [Suspect]
     Active Substance: PEMETREXED
     Indication: Lung neoplasm malignant
     Dosage: 5TH MAINTENANCE DOSE
     Route: 065
     Dates: start: 202009
  6. PEMETREXED [Suspect]
     Active Substance: PEMETREXED
     Route: 065
     Dates: start: 202010
  7. VANCOMYCIN [Suspect]
     Active Substance: VANCOMYCIN
     Indication: Clostridium difficile colitis
     Route: 065
     Dates: start: 2020
  8. CARBOPLATIN [Concomitant]
     Active Substance: CARBOPLATIN
     Dosage: COMPLETED 4 CYCLES
     Route: 065
     Dates: start: 202006, end: 202008
  9. CARBOPLATIN [Concomitant]
     Active Substance: CARBOPLATIN
     Route: 065
     Dates: start: 202010
  10. FOLIC ACID [Concomitant]
     Active Substance: FOLIC ACID
     Indication: Lung neoplasm malignant
     Route: 065
  11. CYANOCOBALAMIN [Concomitant]
     Active Substance: CYANOCOBALAMIN
     Indication: Lung neoplasm malignant
     Route: 065

REACTIONS (3)
  - Thrombotic thrombocytopenic purpura [Recovered/Resolved]
  - Mental status changes [Unknown]
  - Haemolytic anaemia [Unknown]
